FAERS Safety Report 23776509 (Version 2)
Quarter: 2024Q3

REPORT INFORMATION
  Report Type: Spontaneous
  Country: ES (occurrence: ES)
  Receive Date: 20240424
  Receipt Date: 20240711
  Transmission Date: 20241016
  Serious: Yes (Other)
  Sender: CIPLA
  Company Number: ES-SALVAT-202400047

PATIENT

DRUGS (4)
  1. ESOMEPRAZOLE [Suspect]
     Active Substance: ESOMEPRAZOLE
     Indication: Hiatus hernia
     Dosage: 2 WEEKS (MODIFIED RELEASE TABLETS), BIWEEKLY
     Route: 048
     Dates: start: 20240227, end: 20240312
  2. ESOMEPRAZOLE [Suspect]
     Active Substance: ESOMEPRAZOLE
     Indication: Abdominal discomfort
  3. LEVOSULPIRIDE [Suspect]
     Active Substance: LEVOSULPIRIDE
     Indication: Hiatus hernia
     Dosage: 25 MILLIGRAM, BID(2 TABLETS (25 MG/TABLET) PER DAY)
     Route: 048
     Dates: start: 20240227, end: 20240312
  4. LEVOSULPIRIDE [Suspect]
     Active Substance: LEVOSULPIRIDE
     Indication: Abdominal discomfort

REACTIONS (7)
  - Breast discomfort [Not Recovered/Not Resolved]
  - Blood prolactin increased [Unknown]
  - Feeling abnormal [Not Recovered/Not Resolved]
  - Pain [Not Recovered/Not Resolved]
  - Galactorrhoea [Recovered/Resolved]
  - Breast pain [Recovered/Resolved]
  - Dizziness [Not Recovered/Not Resolved]
